FAERS Safety Report 10282949 (Version 1)
Quarter: 2014Q3

REPORT INFORMATION
  Report Type: Spontaneous
  Country: US (occurrence: US)
  Receive Date: 20140708
  Receipt Date: 20140708
  Transmission Date: 20150326
  Serious: No
  Sender: FDA-Public Use
  Company Number: US-BIOGENIDEC-2014BI065606

PATIENT
  Age: 61 Year
  Sex: Female

DRUGS (1)
  1. AVONEX [Suspect]
     Active Substance: INTERFERON BETA-1A
     Indication: MULTIPLE SCLEROSIS
     Route: 030
     Dates: start: 19960901, end: 201405

REACTIONS (13)
  - Gait disturbance [Not Recovered/Not Resolved]
  - Fracture delayed union [Not Recovered/Not Resolved]
  - Confusional state [Not Recovered/Not Resolved]
  - Speech disorder [Not Recovered/Not Resolved]
  - Fall [Recovered/Resolved]
  - Weight bearing difficulty [Not Recovered/Not Resolved]
  - Pain [Not Recovered/Not Resolved]
  - Hepatic enzyme increased [Not Recovered/Not Resolved]
  - Vertigo [Recovered/Resolved]
  - Memory impairment [Not Recovered/Not Resolved]
  - Multiple sclerosis [Not Recovered/Not Resolved]
  - Nausea [Recovered/Resolved]
  - Ankle fracture [Not Recovered/Not Resolved]

NARRATIVE: CASE EVENT DATE: 201405
